FAERS Safety Report 17641780 (Version 2)
Quarter: 2020Q2

REPORT INFORMATION
  Report Type: Spontaneous
  Country: US (occurrence: US)
  Receive Date: 20200408
  Receipt Date: 20200507
  Transmission Date: 20200713
  Serious: No
  Sender: FDA-Public Use
  Company Number: US-ASTRAZENECA-2020SE47075

PATIENT
  Age: 25173 Day
  Sex: Female

DRUGS (1)
  1. BYDUREON BCISE [Suspect]
     Active Substance: EXENATIDE
     Dosage: UNKNOWN DOSE
     Route: 058

REACTIONS (10)
  - Memory impairment [Unknown]
  - Dry skin [Unknown]
  - Injection site swelling [Unknown]
  - Injection site indentation [Unknown]
  - Drug delivery system issue [Unknown]
  - Glycosylated haemoglobin increased [Unknown]
  - Injection site pain [Unknown]
  - Blood glucose increased [Unknown]
  - Inability to afford medication [Unknown]
  - Incorrect dose administered by device [Unknown]

NARRATIVE: CASE EVENT DATE: 20200401
